FAERS Safety Report 4298766-7 (Version None)
Quarter: 2004Q1

REPORT INFORMATION
  Report Type: 
  Country: None (occurrence: None)
  Receive Date: 20040126
  Receipt Date: 20030911
  Transmission Date: 20041129
  Serious: No
  Sender: FDA-Public Use
  Company Number: USA030946993

PATIENT
  Age: 59 Year
  Sex: Female
  Weight: 82 kg

DRUGS (7)
  1. STRATTERA [Suspect]
     Dosage: 80 MG/DAY
     Dates: start: 20030514
  2. PROZAC [Suspect]
     Dates: end: 19970101
  3. ELAVIL [Concomitant]
  4. CORTEF [Concomitant]
  5. LIPITOR [Concomitant]
  6. SYNTHROID [Concomitant]
  7. PREVACID [Concomitant]

REACTIONS (6)
  - ABNORMAL DREAMS [None]
  - DRUG WITHDRAWAL HEADACHE [None]
  - DRY MOUTH [None]
  - MIDDLE INSOMNIA [None]
  - SKIN DISCOLOURATION [None]
  - VERTIGO [None]
